FAERS Safety Report 7775818-8 (Version None)
Quarter: 2011Q3

REPORT INFORMATION
  Report Type: 
  Country: None (occurrence: None)
  Receive Date: 20110923
  Receipt Date: 20110914
  Transmission Date: 20111222
  Serious: Yes (Other)
  Sender: FDA-Public Use
  Company Number: PHEH2009US08867

PATIENT
  Sex: Male

DRUGS (9)
  1. AMBIEN [Concomitant]
  2. ASPIRIN [Concomitant]
  3. AREDIA [Suspect]
     Indication: BONE LOSS
  4. PLAVIX [Concomitant]
  5. ZOMETA [Suspect]
     Indication: BONE LOSS
  6. ZOMETA [Suspect]
     Indication: OSTEOPOROSIS
  7. NEXIUM [Concomitant]
  8. CELEXA [Concomitant]
  9. AREDIA [Suspect]
     Indication: OSTEOPOROSIS

REACTIONS (11)
  - CARDIAC DISORDER [None]
  - COMPRESSION FRACTURE [None]
  - OSTEONECROSIS OF JAW [None]
  - DISABILITY [None]
  - INJURY [None]
  - PLEURAL EFFUSION [None]
  - ANXIETY [None]
  - PAIN [None]
  - OSTEOMYELITIS [None]
  - MULTIPLE MYELOMA [None]
  - ATELECTASIS [None]
